FAERS Safety Report 8599501-4 (Version None)
Quarter: 2012Q3

REPORT INFORMATION
  Report Type: 
  Country: None (occurrence: None)
  Receive Date: 20120816
  Receipt Date: 20120525
  Transmission Date: 20120928
  Serious: No
  Sender: FDA-Public Use
  Company Number: US-ALLERGAN-1207407US

PATIENT
  Sex: Female

DRUGS (3)
  1. LOSARTAN POTASSIUM AND HYDROCHLOROTHIAZIDE [Concomitant]
     Indication: HYPERTENSION
     Dosage: 1 DF, QD
     Route: 048
  2. LASTACAFT [Suspect]
     Indication: CRYING
     Dosage: 2 GTT, QD
     Route: 047
     Dates: start: 20120518, end: 20120518
  3. LASTACAFT [Suspect]
     Indication: EYE DISCHARGE
     Dosage: 2 GTT, QD
     Route: 047
     Dates: start: 20120522, end: 20120523

REACTIONS (6)
  - INFLUENZA LIKE ILLNESS [None]
  - SENSATION OF PRESSURE [None]
  - ASTHENIA [None]
  - UPPER-AIRWAY COUGH SYNDROME [None]
  - DYSPHONIA [None]
  - THROAT IRRITATION [None]
